FAERS Safety Report 4716552-8 (Version None)
Quarter: 2005Q3

REPORT INFORMATION
  Report Type: 
  Country: None (occurrence: None)
  Receive Date: 20050714
  Receipt Date: 20050609
  Transmission Date: 20060218
  Serious: Yes (Hospitalization)
  Sender: FDA-Public Use
  Company Number: PAR_0110_2005

PATIENT
  Age: 51 Year
  Sex: Male

DRUGS (2)
  1. NUROFEN [Suspect]
     Indication: SHOULDER PAIN
     Dosage: DF PO
     Route: 048
     Dates: start: 20050508, end: 20050508
  2. APRANAX [Suspect]
     Indication: SHOULDER PAIN
     Dosage: PO
     Route: 048
     Dates: start: 20050509, end: 20050512

REACTIONS (6)
  - ANAEMIA [None]
  - GASTROINTESTINAL HAEMORRHAGE [None]
  - HAEMATEMESIS [None]
  - KAOLIN CEPHALIN CLOTTING TIME ABNORMAL [None]
  - PLATELET COUNT DECREASED [None]
  - PROTEIN TOTAL ABNORMAL [None]
